FAERS Safety Report 7233401-7 (Version None)
Quarter: 2011Q1

REPORT INFORMATION
  Report Type: 
  Country: None (occurrence: None)
  Receive Date: 20110119
  Receipt Date: 20110107
  Transmission Date: 20110831
  Serious: Yes (Hospitalization, Other)
  Sender: FDA-Public Use
  Company Number: US-ELI_LILLY_AND_COMPANY-US201012001141

PATIENT
  Sex: Male

DRUGS (8)
  1. SPIRIVA [Concomitant]
  2. FORTEO [Suspect]
     Indication: OSTEOPOROSIS
     Dosage: 20 UG, DAILY (1/D)
     Dates: start: 20101108, end: 20101111
  3. METFORMIN HCL [Concomitant]
  4. ASPIRIN [Concomitant]
  5. FORTEO [Suspect]
     Dosage: 20 UG, DAILY (1/D)
     Dates: start: 20101115
  6. CRESTOR [Concomitant]
  7. LISINOPRIL [Concomitant]
  8. ALBUTEROL [Concomitant]
     Route: 055

REACTIONS (6)
  - MUSCLE SPASMS [None]
  - DYSPNOEA [None]
  - CHRONIC OBSTRUCTIVE PULMONARY DISEASE [None]
  - MYOCARDIAL INFARCTION [None]
  - VASCULAR OCCLUSION [None]
  - IMMUNE SYSTEM DISORDER [None]
